FAERS Safety Report 7064548-6 (Version None)
Quarter: 2010Q4

REPORT INFORMATION
  Report Type: 
  Country: None (occurrence: None)
  Receive Date: 20101027
  Receipt Date: 20101022
  Transmission Date: 20110411
  Serious: Yes (Hospitalization)
  Sender: FDA-Public Use
  Company Number: US-PFIZER INC-2010135436

PATIENT
  Sex: Male
  Weight: 90.718 kg

DRUGS (8)
  1. CELEBREX [Suspect]
     Indication: PAIN
     Dosage: 400 MG, 1X/DAY
     Dates: start: 20060101
  2. CELEBREX [Suspect]
     Dosage: 200 MG, 1X/DAY
  3. TOPROL-XL [Concomitant]
     Dosage: 100 MG, UNK
  4. DOXEPIN [Concomitant]
     Dosage: 75 MG, 1X/DAY
  5. PRAVACHOL [Concomitant]
     Dosage: 40 MG, 1X/DAY
  6. ZEGERID [Concomitant]
     Dosage: UNK
  7. SODIUM BICARBONATE [Concomitant]
     Dosage: UNIT DOSE: 1000
  8. ACETYLSALICYLIC ACID [Concomitant]
     Dosage: 81 MG, UNK

REACTIONS (7)
  - ABASIA [None]
  - ACTIVITIES OF DAILY LIVING IMPAIRED [None]
  - BACK DISORDER [None]
  - DRUG DOSE OMISSION [None]
  - EXPIRED DRUG ADMINISTERED [None]
  - ORTHOPEDIC PROCEDURE [None]
  - PAIN IN EXTREMITY [None]
